FAERS Safety Report 19481170 (Version 1)
Quarter: 2021Q3

REPORT INFORMATION
  Report Type: Spontaneous
  Country: US (occurrence: US)
  Receive Date: 20210701
  Receipt Date: 20210701
  Transmission Date: 20211014
  Serious: No
  Sender: FDA-Public Use
  Company Number: US-TEVA-2021-US-1928691

PATIENT
  Sex: Female

DRUGS (1)
  1. METOPROLOL SUCCINATE ACTAVIS [Suspect]
     Active Substance: METOPROLOL SUCCINATE
     Indication: HYPERTENSION
     Route: 065

REACTIONS (1)
  - Drug ineffective [Unknown]
